FAERS Safety Report 5453079-2 (Version None)
Quarter: 2007Q3

REPORT INFORMATION
  Report Type: 
  Country: None (occurrence: None)
  Receive Date: 20070914
  Receipt Date: 20070903
  Transmission Date: 20080115
  Serious: Yes (Life-Threatening, Hospitalization)
  Sender: FDA-Public Use
  Company Number: IE-PFIZER INC-2007063575

PATIENT
  Age: 39 Year
  Sex: Male
  Weight: 80 kg

DRUGS (4)
  1. LYRICA [Suspect]
     Indication: PAIN
     Route: 048
     Dates: start: 20070601, end: 20070722
  2. AMITRIPTYLINE HCL [Concomitant]
     Indication: PAIN
     Route: 048
  3. OXYCODONE HCL [Concomitant]
     Indication: PAIN
     Route: 048
  4. ALCOHOL [Concomitant]
     Route: 048

REACTIONS (9)
  - ALCOHOL INTERACTION [None]
  - CONCUSSION [None]
  - DEPRESSED LEVEL OF CONSCIOUSNESS [None]
  - FALL [None]
  - HYPOVENTILATION [None]
  - HYPOXIA [None]
  - LOSS OF CONSCIOUSNESS [None]
  - PNEUMONIA ASPIRATION [None]
  - RESPIRATORY ARREST [None]
